FAERS Safety Report 7104006-3 (Version None)
Quarter: 2010Q4

REPORT INFORMATION
  Report Type: 
  Country: None (occurrence: None)
  Receive Date: 20101115
  Receipt Date: 20101108
  Transmission Date: 20110411
  Serious: Yes (Hospitalization)
  Sender: FDA-Public Use
  Company Number: FR-ABBOTT-10P-056-0684179-00

PATIENT
  Age: 74 Year
  Sex: Female

DRUGS (5)
  1. NAXY [Suspect]
     Indication: NASOPHARYNGITIS
     Route: 048
     Dates: start: 20100329, end: 20100330
  2. SOLUPRED [Suspect]
     Indication: NASOPHARYNGITIS
     Route: 048
     Dates: start: 20100329
  3. KARDEGIC [Suspect]
     Indication: PRODUCT USED FOR UNKNOWN INDICATION
     Route: 048
  4. ZOCOR [Suspect]
     Indication: PRODUCT USED FOR UNKNOWN INDICATION
     Route: 048
  5. COLCHIMAX [Suspect]
     Indication: GOUT
     Route: 048
     Dates: start: 20100330, end: 20100330

REACTIONS (7)
  - ABDOMINAL PAIN [None]
  - CHOLESTASIS [None]
  - CYTOLYTIC HEPATITIS [None]
  - LEUKOPENIA [None]
  - NAUSEA [None]
  - SELF-MEDICATION [None]
  - VOMITING [None]
